FAERS Safety Report 4332354-9 (Version None)
Quarter: 2004Q2

REPORT INFORMATION
  Report Type: 
  Country: None (occurrence: None)
  Receive Date: 20040401
  Receipt Date: 20040318
  Transmission Date: 20050107
  Serious: Yes (Other)
  Sender: FDA-Public Use
  Company Number: GB-JNJFOC-20040204335

PATIENT
  Age: 57 Year
  Sex: Female
  Weight: 109 kg

DRUGS (18)
  1. REMICADE [Suspect]
     Indication: VASCULITIS
     Dosage: 5 MG/KG, INTRAVENOUS
     Route: 042
     Dates: start: 20040108, end: 20040108
  2. MMF (MYCOPHENOLATE MOFETIL) [Concomitant]
  3. PREDNISOLONE [Concomitant]
  4. TEGRETOL [Concomitant]
  5. FUROSEMIDE [Concomitant]
  6. ALLOPURINOL [Concomitant]
  7. NABUMETONE [Concomitant]
  8. MORPHINE SULFATE [Concomitant]
  9. LISINOPRIL [Concomitant]
  10. ATORVASTATIN (ATORVASTATIN) [Concomitant]
  11. AMLODIPINE [Concomitant]
  12. RANITIDINE [Concomitant]
  13. FLUOXETINE [Concomitant]
  14. WARFARIN SODIUM [Concomitant]
  15. GLYCERYL NITRATE (GLYCERYL TRINITRATE) [Concomitant]
  16. TERBUTALINE SULFATE [Concomitant]
  17. GAVISCON [Concomitant]
  18. NEBULIZER (OTHER RESPIRATORY SYSTEM PRODUCTS) [Concomitant]

REACTIONS (7)
  - CONDITION AGGRAVATED [None]
  - DRUG HYPERSENSITIVITY [None]
  - HAEMORRHAGE [None]
  - INFARCTION [None]
  - INFUSION RELATED REACTION [None]
  - NUCLEAR MAGNETIC RESONANCE IMAGING ABNORMAL [None]
  - VASCULITIS [None]
